FAERS Safety Report 5402422-9 (Version None)
Quarter: 2007Q3

REPORT INFORMATION
  Report Type: 
  Country: None (occurrence: None)
  Receive Date: 20070730
  Receipt Date: 20070724
  Transmission Date: 20080115
  Serious: Yes (Other)
  Sender: FDA-Public Use
  Company Number: 2007SP010204

PATIENT
  Age: 29 Year
  Sex: Female
  Weight: 59.4212 kg

DRUGS (2)
  1. PEG-INTRON (PEGINTERFERON ALFA-AB) [Suspect]
     Indication: HEPATITIS C
     Dosage: 96 MCG;QW;SC
     Route: 058
     Dates: start: 20070514
  2. RIBAVIRIN [Suspect]
     Indication: HEPATITIS C
     Dosage: 800 MG;QD;PO
     Route: 048
     Dates: start: 20070514

REACTIONS (13)
  - ANXIETY [None]
  - ARTHRALGIA [None]
  - CHILLS [None]
  - DEHYDRATION [None]
  - DIARRHOEA [None]
  - HEADACHE [None]
  - INJECTION SITE BRUISING [None]
  - NAUSEA [None]
  - PYREXIA [None]
  - THIRST [None]
  - URINARY TRACT INFECTION [None]
  - VOMITING [None]
  - WEIGHT DECREASED [None]
